FAERS Safety Report 25957089 (Version 2)
Quarter: 2025Q4

REPORT INFORMATION
  Report Type: Report from Study
  Country: CA (occurrence: CA)
  Receive Date: 20251024
  Receipt Date: 20251222
  Transmission Date: 20260118
  Serious: Yes (Other)
  Sender: JOHNSON AND JOHNSON
  Company Number: CA-JNJFOC-20250631047

PATIENT
  Age: 59 Year
  Sex: Male

DRUGS (4)
  1. REMICADE [Suspect]
     Active Substance: INFLIXIMAB
     Indication: Colitis ulcerative
     Route: 041
     Dates: start: 20250505
  2. REMICADE [Suspect]
     Active Substance: INFLIXIMAB
     Route: 041
     Dates: start: 20250505
  3. CEPHALEXIN [Suspect]
     Active Substance: CEPHALEXIN
     Indication: Streptococcal infection
  4. CEPHALEXIN [Suspect]
     Active Substance: CEPHALEXIN
     Indication: Skin laceration

REACTIONS (7)
  - Animal bite [Recovered/Resolved]
  - Blood iron decreased [Unknown]
  - Skin laceration [Not Recovered/Not Resolved]
  - Streptococcal infection [Recovering/Resolving]
  - Fatigue [Not Recovered/Not Resolved]
  - Pain [Not Recovered/Not Resolved]
  - Asthenia [Not Recovered/Not Resolved]

NARRATIVE: CASE EVENT DATE: 20250101
